FAERS Safety Report 16653992 (Version 5)
Quarter: 2021Q3

REPORT INFORMATION
  Report Type: Report from Study
  Country: IT (occurrence: IT)
  Receive Date: 20190731
  Receipt Date: 20210909
  Transmission Date: 20211014
  Serious: Yes (Death, Hospitalization, Other)
  Sender: FDA-Public Use
  Company Number: IT-INCYTE CORPORATION-2019IN007638

PATIENT

DRUGS (14)
  1. ASPIRIN [ACETYLSALICYLIC ACID] [Concomitant]
     Active Substance: ASPIRIN
     Indication: PRODUCT USED FOR UNKNOWN INDICATION
     Dosage: UNK
     Route: 065
  2. ALLOPURINOLO [Concomitant]
     Active Substance: ALLOPURINOL
     Indication: HYPERURICAEMIA
     Dosage: 150 MG, QD
     Route: 048
     Dates: start: 20170829, end: 20200603
  3. CARDIOPIRIN [Concomitant]
     Active Substance: ASPIRIN
     Indication: PROPHYLAXIS
     Dosage: 100 OT
     Route: 048
     Dates: start: 20150720
  4. DILZENE [Concomitant]
     Active Substance: DILTIAZEM HYDROCHLORIDE
     Indication: ARTERIAL INJURY
     Dosage: 60 MG, TID
     Route: 065
     Dates: start: 20170829
  5. JAKAVI [Suspect]
     Active Substance: RUXOLITINIB
     Dosage: UNK
     Route: 065
  6. ONCO CARBIDE [Concomitant]
     Active Substance: HYDROXYUREA
     Indication: MYELOFIBROSIS
     Dosage: 500 MG, QD
     Route: 048
     Dates: start: 20181001
  7. URBASON [METHYLPREDNISOLONE ACETATE] [Concomitant]
     Active Substance: METHYLPREDNISOLONE ACETATE
     Indication: PRODUCT USED FOR UNKNOWN INDICATION
     Dosage: 20 MG, QD
     Route: 048
     Dates: start: 20200517, end: 20200603
  8. EUTIROX [Concomitant]
     Active Substance: LEVOTHYROXINE SODIUM
     Indication: THYROID DISORDER
     Dosage: 100 MG (ON TUE?WED?SAT?SUNDAY)
     Route: 048
     Dates: start: 20170829
  9. OMEPRAZOLE. [Concomitant]
     Active Substance: OMEPRAZOLE
     Indication: GASTRITIS PROPHYLAXIS
     Dosage: 40 MG, QD
     Route: 048
     Dates: start: 20181015
  10. LANOXIN [Concomitant]
     Active Substance: DIGOXIN
     Indication: ATRIAL FIBRILLATION
     Dosage: 0.062 MG, BID
     Route: 048
     Dates: start: 20180531
  11. JAKAVI [Suspect]
     Active Substance: RUXOLITINIB
     Indication: MYELOFIBROSIS
     Dosage: 10 MG, QD
     Route: 048
     Dates: start: 20170829
  12. VENITRIN [Concomitant]
     Active Substance: NITROGLYCERIN
     Indication: ARTERIAL INJURY
     Dosage: 5 MG, Q24H
     Route: 065
     Dates: start: 20170829
  13. TRIATEC [RAMIPRIL] [Concomitant]
     Active Substance: RAMIPRIL
     Indication: HYPERTENSION
     Dosage: 5 MG, QD
     Route: 048
     Dates: start: 20170829
  14. CEFTRIAXONE. [Concomitant]
     Active Substance: CEFTRIAXONE
     Indication: BACTERIAL INFECTION
     Dosage: 2 G, QD
     Route: 048
     Dates: start: 20200517, end: 20200603

REACTIONS (25)
  - Haematocrit decreased [Unknown]
  - COVID-19 [Recovered/Resolved]
  - Multiple injuries [Unknown]
  - Thrombocytopenia [Unknown]
  - Red blood cell sedimentation rate increased [Unknown]
  - Platelet count decreased [Unknown]
  - Red blood cell count increased [Unknown]
  - Red cell distribution width increased [Unknown]
  - Monocyte count increased [Unknown]
  - White blood cell count increased [Unknown]
  - Interstitial lung disease [Not Recovered/Not Resolved]
  - Red blood cell count decreased [Unknown]
  - Fall [Not Recovered/Not Resolved]
  - Anaemia [Unknown]
  - Mean platelet volume increased [Unknown]
  - Pleural effusion [Unknown]
  - General physical health deterioration [Fatal]
  - Lymphocyte percentage decreased [Unknown]
  - Rib fracture [Fatal]
  - Plateletcrit decreased [Unknown]
  - Pneumonia [Recovered/Resolved]
  - Neutrophil percentage increased [Unknown]
  - Eosinophil count increased [Unknown]
  - Haemoglobin decreased [Unknown]
  - Spleen contusion [Unknown]

NARRATIVE: CASE EVENT DATE: 20190506
